FAERS Safety Report 15783699 (Version 1)
Quarter: 2019Q1

REPORT INFORMATION
  Report Type: Spontaneous
  Country: NL (occurrence: CA)
  Receive Date: 20190102
  Receipt Date: 20190102
  Transmission Date: 20190417
  Serious: Yes (Hospitalization)
  Sender: FDA-Public Use
  Company Number: NL-MYLANLABS-2018M1096557

PATIENT
  Age: 30 Year
  Sex: Female

DRUGS (2)
  1. LIOTHYRONINE [Suspect]
     Active Substance: LIOTHYRONINE
     Indication: HYPOTHYROIDISM
     Dosage: 25 MICROGRAM, QD
     Route: 065
  2. LIOTHYRONINE [Suspect]
     Active Substance: LIOTHYRONINE
     Dosage: A MANUALLY COMPOUNDED EXTENDED RELEASE (15 MICROG TWICE DAILY)
     Route: 065

REACTIONS (5)
  - Product preparation error [Recovered/Resolved]
  - Diplopia [Recovered/Resolved]
  - Overdose [Recovered/Resolved]
  - Depressed level of consciousness [Recovered/Resolved]
  - Hyperthyroidism [Recovered/Resolved]
